FAERS Safety Report 4299913-3 (Version None)
Quarter: 2004Q1

REPORT INFORMATION
  Report Type: 
  Country: None (occurrence: None)
  Receive Date: 20040218
  Receipt Date: 20040206
  Transmission Date: 20041129
  Serious: Yes (Other)
  Sender: FDA-Public Use
  Company Number: BE-JNJFOC-20040201607

PATIENT
  Age: 2 Year
  Sex: Male

DRUGS (1)
  1. PROPULSID [Suspect]
     Indication: GASTROOESOPHAGEAL REFLUX DISEASE
     Dosage: 2.4 MG, 4 IN 1 DAY, UNKNOWN
     Dates: start: 20030319

REACTIONS (1)
  - PNEUMONIA [None]
